FAERS Safety Report 15320932 (Version 1)
Quarter: 2018Q3

REPORT INFORMATION
  Report Type: Spontaneous
  Country: US (occurrence: US)
  Receive Date: 20180821
  Receipt Date: 20180821
  Transmission Date: 20181010
  Serious: Yes (Life-Threatening)
  Sender: FDA-Public Use
  Company Number: None

PATIENT
  Age: 19 Year
  Sex: Female
  Weight: 45.81 kg

DRUGS (1)
  1. REMICADE [Suspect]
     Active Substance: INFLIXIMAB
     Indication: CROHN^S DISEASE
     Dosage: 300MG WAS ON 3RD DOSE  0,2,6WKS THEN 8WKS IV?
     Route: 042
     Dates: start: 20180406, end: 20180713

REACTIONS (5)
  - Flushing [None]
  - Blood pressure increased [None]
  - Dyspnoea [None]
  - Heart rate increased [None]
  - Dysphagia [None]

NARRATIVE: CASE EVENT DATE: 20180713
